FAERS Safety Report 6603724-0 (Version None)
Quarter: 2010Q1

REPORT INFORMATION
  Report Type: 
  Country: None (occurrence: None)
  Receive Date: 20100226
  Receipt Date: 20090105
  Transmission Date: 20100710
  Serious: No
  Sender: FDA-Public Use
  Company Number: A0762356A

PATIENT
  Age: 18 Year
  Sex: Male

DRUGS (2)
  1. LAMICTAL CD [Suspect]
     Indication: BIPOLAR DISORDER
     Route: 048
     Dates: start: 20051201, end: 20060101
  2. DEPAKOTE [Concomitant]

REACTIONS (1)
  - RASH [None]
